FAERS Safety Report 13347820 (Version 1)
Quarter: 2017Q1

REPORT INFORMATION
  Report Type: Spontaneous
  Country: US (occurrence: US)
  Receive Date: 20170317
  Receipt Date: 20170317
  Transmission Date: 20170428
  Serious: Yes (Other)
  Sender: FDA-Public Use
  Company Number: US-ELI_LILLY_AND_COMPANY-US201701008774

PATIENT
  Age: 47 Year
  Sex: Female
  Weight: 92.25 kg

DRUGS (2)
  1. TRULICITY [Suspect]
     Active Substance: DULAGLUTIDE
     Dosage: 1.5 MG, 2/M
     Route: 058
     Dates: start: 20150213
  2. TRULICITY [Suspect]
     Active Substance: DULAGLUTIDE
     Indication: PRODUCT USED FOR UNKNOWN INDICATION
     Dosage: 1.5 MG, WEEKLY (1/W)
     Route: 058
     Dates: start: 20150213

REACTIONS (5)
  - Irritability [Not Recovered/Not Resolved]
  - Vitamin D deficiency [Unknown]
  - Inappropriate schedule of drug administration [Unknown]
  - Depressed mood [Not Recovered/Not Resolved]
  - Vitamin B complex deficiency [Unknown]
